FAERS Safety Report 13641897 (Version 3)
Quarter: 2017Q2

REPORT INFORMATION
  Report Type: Spontaneous
  Country: JP (occurrence: JP)
  Receive Date: 20170612
  Receipt Date: 20170616
  Transmission Date: 20170830
  Serious: Yes (Other)
  Sender: FDA-Public Use
  Company Number: JP-JNJFOC-20170312341

PATIENT
  Sex: Female

DRUGS (2)
  1. TASMOLIN [Concomitant]
     Active Substance: BIPERIDEN
     Indication: PRODUCT USED FOR UNKNOWN INDICATION
     Route: 048
  2. XEPLION [Suspect]
     Active Substance: PALIPERIDONE PALMITATE
     Indication: SCHIZOPHRENIA
     Route: 030

REACTIONS (13)
  - Musculoskeletal stiffness [Not Recovered/Not Resolved]
  - Thirst [Unknown]
  - Dyspnoea [Unknown]
  - Insomnia [Unknown]
  - Adverse reaction [Unknown]
  - Hyperprolactinaemia [Unknown]
  - Suicidal ideation [Unknown]
  - Thirst [Unknown]
  - Tooth extraction [Unknown]
  - Malaise [Unknown]
  - Nausea [Not Recovered/Not Resolved]
  - Amenorrhoea [Not Recovered/Not Resolved]
  - Dysarthria [Unknown]

NARRATIVE: CASE EVENT DATE: 2017
